FAERS Safety Report 7120305-3 (Version None)
Quarter: 2010Q4

REPORT INFORMATION
  Report Type: 
  Country: None (occurrence: None)
  Receive Date: 20101123
  Receipt Date: 20101117
  Transmission Date: 20110411
  Serious: Yes (Hospitalization)
  Sender: FDA-Public Use
  Company Number: FR-BRISTOL-MYERS SQUIBB COMPANY-15395767

PATIENT
  Age: 71 Year
  Sex: Male
  Weight: 61 kg

DRUGS (8)
  1. ORENCIA [Suspect]
     Dosage: NO OF INFUSIONS:29
     Route: 042
     Dates: start: 20100601, end: 20101006
  2. ARAVA [Concomitant]
     Route: 048
  3. TAMSULOSIN HCL [Concomitant]
     Dosage: 1DF=1TABLET
     Route: 048
  4. COVERSYL [Concomitant]
     Route: 048
  5. TOPALGIC [Concomitant]
     Dosage: TOPALGIC 150 SR
     Route: 048
  6. CACIT D3 [Concomitant]
  7. CORTANCYL [Concomitant]
  8. DIPROSONE [Concomitant]

REACTIONS (10)
  - CHILLS [None]
  - DIARRHOEA [None]
  - DIZZINESS [None]
  - DRUG INEFFECTIVE [None]
  - GAIT DISTURBANCE [None]
  - HYPERHIDROSIS [None]
  - MALAISE [None]
  - MEMORY IMPAIRMENT [None]
  - NAUSEA [None]
  - VERTIGO [None]
